FAERS Safety Report 20771861 (Version 2)
Quarter: 2022Q2

REPORT INFORMATION
  Report Type: Spontaneous
  Country: JP (occurrence: JP)
  Receive Date: 20220430
  Receipt Date: 20220513
  Transmission Date: 20220720
  Serious: Yes (Hospitalization)
  Sender: FDA-Public Use
  Company Number: JP-ALLERGAN-2213690US

PATIENT
  Sex: Female

DRUGS (12)
  1. SUCRALFATE [Suspect]
     Active Substance: SUCRALFATE
     Indication: Product used for unknown indication
     Route: 048
  2. ATENOLOL [Concomitant]
     Active Substance: ATENOLOL
  3. HYDROCHLOROTHIAZIDE\LOSARTAN POTASSIUM [Concomitant]
     Active Substance: HYDROCHLOROTHIAZIDE\LOSARTAN POTASSIUM
  4. CIFENLINE [Concomitant]
     Active Substance: CIFENLINE
  5. DOMPERIDONE [Concomitant]
     Active Substance: DOMPERIDONE
  6. CETRAXATE [Concomitant]
  7. ADALIMUMAB [Concomitant]
     Active Substance: ADALIMUMAB
  8. METHOTREXATE [Concomitant]
     Active Substance: METHOTREXATE
  9. ELDECALCITOL [Concomitant]
     Active Substance: ELDECALCITOL
  10. FURSULTIAMINE [Concomitant]
     Active Substance: FURSULTIAMINE
  11. ALLOPURINOL [Concomitant]
     Active Substance: ALLOPURINOL
  12. URSODIOL [Concomitant]
     Active Substance: URSODIOL

REACTIONS (3)
  - Hyperaluminaemia [Recovering/Resolving]
  - Electrocardiogram QT prolonged [Unknown]
  - Renal impairment [Unknown]
